FAERS Safety Report 11046100 (Version 2)
Quarter: 2015Q2

REPORT INFORMATION
  Report Type: Spontaneous
  Country: US (occurrence: US)
  Receive Date: 20150418
  Receipt Date: 20150524
  Transmission Date: 20150821
  Serious: No
  Sender: FDA-Public Use
  Company Number: US-JNJFOC-20140115415

PATIENT
  Age: 70 Year
  Sex: Female
  Weight: 99.79 kg

DRUGS (9)
  1. COUMADIN [Concomitant]
     Active Substance: WARFARIN SODIUM
     Indication: ANTICOAGULANT THERAPY
     Route: 065
  2. MULTIVITAMINS [Concomitant]
     Active Substance: VITAMINS
     Indication: NUTRITIONAL SUPPLEMENTATION
     Route: 065
  3. NIZORAL A-D [Suspect]
     Active Substance: KETOCONAZOLE
     Indication: DERMATITIS
     Dosage: LATHERED HEAD/ LIBERALLY  1 TIME
     Route: 061
     Dates: start: 20140121, end: 20140121
  4. KETOCONAZOLE 2% [Concomitant]
     Active Substance: KETOCONAZOLE
     Indication: DERMATITIS
     Route: 061
  5. NEXIUM [Concomitant]
     Active Substance: ESOMEPRAZOLE MAGNESIUM
     Indication: GASTROOESOPHAGEAL REFLUX DISEASE
     Dosage: 1 TABLET
     Route: 065
  6. NIZORAL A-D [Suspect]
     Active Substance: KETOCONAZOLE
     Indication: DERMATITIS
     Route: 061
     Dates: start: 20140119, end: 20140119
  7. KETOCONAZOLE 2% [Concomitant]
     Active Substance: KETOCONAZOLE
     Indication: DANDRUFF
     Route: 061
  8. NIZORAL A-D [Suspect]
     Active Substance: KETOCONAZOLE
     Indication: PRURITUS
     Route: 061
     Dates: start: 20140119, end: 20140119
  9. NIZORAL A-D [Suspect]
     Active Substance: KETOCONAZOLE
     Indication: PRURITUS
     Dosage: LATHERED HEAD/ LIBERALLY  1 TIME
     Route: 061
     Dates: start: 20140121, end: 20140121

REACTIONS (5)
  - Seborrhoea [Unknown]
  - Product tampering [Unknown]
  - Alopecia [Recovering/Resolving]
  - Product use issue [Unknown]
  - Drug ineffective [Unknown]

NARRATIVE: CASE EVENT DATE: 20140121
